FAERS Safety Report 17702465 (Version 2)
Quarter: 2020Q2

REPORT INFORMATION
  Report Type: Spontaneous
  Country: DE (occurrence: DE)
  Receive Date: 20200424
  Receipt Date: 20200526
  Transmission Date: 20200714
  Serious: Yes (Life-Threatening, Hospitalization, Other)
  Sender: FDA-Public Use
  Company Number: DE-ACCORD-179242

PATIENT
  Age: 51 Year
  Sex: Female
  Weight: 73.6 kg

DRUGS (5)
  1. FENTANYL. [Concomitant]
     Active Substance: FENTANYL
     Indication: PAIN
     Dosage: 12UG/H
     Route: 062
  2. FLUOROURACIL. [Suspect]
     Active Substance: FLUOROURACIL
     Indication: BREAST CANCER
     Dosage: 2600 MG/M2 MILLIGRAM(S)/SQ. METER
     Route: 042
     Dates: start: 20200224, end: 20200224
  3. BRIVUDINE [Interacting]
     Active Substance: BRIVUDINE
     Indication: HERPES ZOSTER
     Dosage: 1 X 125 MG / D FOR 7 DAYS
     Route: 048
     Dates: start: 20200210, end: 20200217
  4. TRAZODONE [Concomitant]
     Active Substance: TRAZODONE HYDROCHLORIDE
     Indication: DEPRESSION
     Dosage: STRENGTH: 100 MG, DOSE: 0.5
     Route: 048
  5. FENTANYL. [Concomitant]
     Active Substance: FENTANYL
     Indication: PAIN
     Route: 060

REACTIONS (6)
  - Pancytopenia [Recovered/Resolved]
  - Alopecia [Unknown]
  - Mucosal inflammation [Recovered/Resolved]
  - Drug interaction [Unknown]
  - Febrile neutropenia [Recovering/Resolving]
  - Haematotoxicity [Unknown]

NARRATIVE: CASE EVENT DATE: 20200227
